FAERS Safety Report 5724713-4 (Version None)
Quarter: 2008Q2

REPORT INFORMATION
  Report Type: 
  Country: None (occurrence: None)
  Receive Date: 20080501
  Receipt Date: 20080423
  Transmission Date: 20081010
  Serious: Yes (Other)
  Sender: FDA-Public Use
  Company Number: US-ROCHE-560566

PATIENT
  Sex: Female
  Weight: 92.5 kg

DRUGS (5)
  1. PEG-INTERFERON A-2A (RO 25-8310) [Suspect]
     Dosage: PT ON PEGASYS 180 MCG PREFILLED SYRINGE
     Route: 065
     Dates: start: 20080117, end: 20080401
  2. PEG-INTERFERON A-2A (RO 25-8310) [Suspect]
     Dosage: PT ON PEGASYS 180 MCG PREFILLED SYRINGE
     Route: 065
     Dates: start: 20080417
  3. RIBAVIRIN [Suspect]
     Route: 065
     Dates: start: 20080117, end: 20080401
  4. PROZAC [Concomitant]
     Indication: DEPRESSION
  5. LORAZEPAM [Concomitant]
     Indication: ANXIETY

REACTIONS (2)
  - ANAEMIA [None]
  - HYPOTENSION [None]
